FAERS Safety Report 10348299 (Version 6)
Quarter: 2014Q3

REPORT INFORMATION
  Report Type: Spontaneous
  Country: JP (occurrence: None)
  Receive Date: 20140725
  Receipt Date: 20140814
  Transmission Date: 20150326
  Serious: Yes (Death, Hospitalization, Other)
  Sender: FDA-Public Use
  Company Number: ADR-2014-01293

PATIENT
  Age: 62 Year
  Sex: Male
  Weight: 48 kg

DRUGS (1)
  1. GABLOFEN [Suspect]
     Active Substance: BACLOFEN
     Route: 037
     Dates: start: 20090121, end: 20130609

REACTIONS (4)
  - Therapy change [None]
  - Lung neoplasm malignant [None]
  - Respiratory disorder [None]
  - Condition aggravated [None]

NARRATIVE: CASE EVENT DATE: 20140601
